FAERS Safety Report 4948440-6 (Version None)
Quarter: 2006Q1

REPORT INFORMATION
  Report Type: 
  Country: None (occurrence: None)
  Receive Date: 20060314
  Receipt Date: 20060228
  Transmission Date: 20060701
  Serious: Yes (Death, Other)
  Sender: FDA-Public Use
  Company Number: 2006026076

PATIENT
  Age: 80 Year
  Sex: Female

DRUGS (4)
  1. VFEND [Suspect]
     Indication: SEPSIS
     Dosage: 200 MG, INTRAVENOUS
     Route: 042
     Dates: start: 20060217, end: 20060220
  2. PRODIF (FOSFLUCONAZOLE) [Suspect]
     Indication: ILL-DEFINED DISORDER
     Dosage: 504.5 MG, INTRAVENOUS
     Route: 042
     Dates: start: 20060222
  3. TIENAM (CILASTATIN, IMIPENEM) [Suspect]
     Indication: ILL-DEFINED DISORDER
     Dosage: INTRAVENOUS
     Route: 042
  4. CARBENIN (BETAMIPRON, PANIPENEM) [Concomitant]

REACTIONS (2)
  - CONDITION AGGRAVATED [None]
  - LIVER FUNCTION TEST ABNORMAL [None]
